FAERS Safety Report 9470744 (Version 2)
Quarter: 2013Q3

REPORT INFORMATION
  Report Type: Spontaneous
  Country: US (occurrence: US)
  Receive Date: 20130822
  Receipt Date: 20130822
  Transmission Date: 20140515
  Serious: Yes (Other)
  Sender: FDA-Public Use
  Company Number: US-SANOFI-AVENTIS-2013SA056643

PATIENT
  Age: 69 Year
  Sex: Male
  Weight: 84.36 kg

DRUGS (25)
  1. ELOXATIN [Suspect]
     Indication: COLON CANCER
     Route: 065
     Dates: start: 20120402, end: 20120402
  2. ELOXATIN [Suspect]
     Indication: ANAEMIA
     Route: 065
     Dates: start: 20120402, end: 20120402
  3. ELOXATIN [Suspect]
     Indication: COLON CANCER
     Route: 065
     Dates: start: 20130527, end: 20130527
  4. ELOXATIN [Suspect]
     Indication: ANAEMIA
     Route: 065
     Dates: start: 20130527, end: 20130527
  5. ELOXATIN [Suspect]
     Indication: COLON CANCER
     Route: 065
     Dates: start: 20130627, end: 20130627
  6. ELOXATIN [Suspect]
     Indication: ANAEMIA
     Route: 065
     Dates: start: 20130627, end: 20130627
  7. ZALTRAP [Suspect]
     Indication: COLON CANCER METASTATIC
     Route: 065
     Dates: start: 20130627, end: 20130627
  8. AVASTIN [Suspect]
     Indication: COLON CANCER
     Route: 065
     Dates: start: 20120402, end: 20120402
  9. AVASTIN [Suspect]
     Indication: LUNG NEOPLASM MALIGNANT
     Route: 065
     Dates: start: 20120402, end: 20120402
  10. AVASTIN [Suspect]
     Indication: COLON CANCER
     Route: 065
     Dates: start: 20130527, end: 20130527
  11. AVASTIN [Suspect]
     Indication: LUNG NEOPLASM MALIGNANT
     Route: 065
     Dates: start: 20130527, end: 20130527
  12. AVASTIN [Suspect]
     Indication: COLON CANCER
     Route: 065
     Dates: start: 20120223, end: 20120223
  13. AVASTIN [Suspect]
     Indication: LUNG NEOPLASM MALIGNANT
     Route: 065
     Dates: start: 20120223, end: 20120223
  14. IRINOTECAN [Suspect]
     Indication: COLON CANCER METASTATIC
     Route: 065
     Dates: start: 20120402, end: 20120402
  15. IRINOTECAN [Suspect]
     Indication: COLON CANCER METASTATIC
     Route: 065
     Dates: start: 20130527, end: 20130527
  16. IRINOTECAN [Suspect]
     Indication: COLON CANCER METASTATIC
     Route: 065
     Dates: start: 20130627, end: 20130627
  17. IRINOTECAN [Suspect]
     Indication: COLON CANCER METASTATIC
     Route: 065
     Dates: start: 20120223, end: 20120223
  18. FLUOROURACIL [Suspect]
     Route: 065
     Dates: start: 20120223, end: 20120223
  19. FOLINIC ACID [Suspect]
     Indication: COLON CANCER
     Route: 065
     Dates: start: 20120223, end: 20120223
  20. FOLINIC ACID [Suspect]
     Indication: ANAEMIA
     Route: 065
     Dates: start: 20120223, end: 20120223
  21. COLACE [Concomitant]
     Route: 048
  22. NORCO [Concomitant]
     Indication: PAIN
     Dosage: DOSE- 5-325 MG
     Route: 048
  23. ANEXSIA [Concomitant]
     Indication: PAIN
     Route: 048
  24. LEVOTHYROXINE [Concomitant]
     Route: 048
  25. CENTRUM SILVER [Concomitant]
     Route: 048

REACTIONS (8)
  - Neoplasm progression [Unknown]
  - Tumour pain [Unknown]
  - Metastases to liver [Unknown]
  - Metastases to lung [Unknown]
  - Red blood cell count decreased [Unknown]
  - Chills [Recovered/Resolved]
  - Dizziness [Unknown]
  - Nausea [Unknown]
